FAERS Safety Report 7344469-1 (Version None)
Quarter: 2011Q1

REPORT INFORMATION
  Report Type: 
  Country: None (occurrence: None)
  Receive Date: 20110310
  Receipt Date: 20110307
  Transmission Date: 20110831
  Serious: Yes (Hospitalization)
  Sender: FDA-Public Use
  Company Number: FR-ROCHE-681947

PATIENT
  Sex: Male
  Weight: 83 kg

DRUGS (5)
  1. RIBAVIRIN [Suspect]
     Dosage: LAST DOSE PRIOR TO SAE: 23 JAN 2010.
     Route: 048
     Dates: start: 20090908
  2. VITAMIN B COMPLEX CAP [Concomitant]
     Dosage: DRUG REPORTED AS VITAMIN B AND C.
     Dates: start: 20090908
  3. PEGINTERFERON ALFA-2A [Suspect]
     Route: 065
     Dates: start: 20090908
  4. PARACETAMOL [Concomitant]
     Dates: start: 20090908
  5. DEXERYL [Concomitant]
     Dates: start: 20091229

REACTIONS (3)
  - HEADACHE [None]
  - LOSS OF CONSCIOUSNESS [None]
  - PUPILS UNEQUAL [None]
